FAERS Safety Report 7004151-7 (Version None)
Quarter: 2010Q3

REPORT INFORMATION
  Report Type: 
  Country: None (occurrence: None)
  Receive Date: 20100920
  Receipt Date: 20100205
  Transmission Date: 20110219
  Serious: No
  Sender: FDA-Public Use
  Company Number: US-WYE-H13504910

PATIENT
  Sex: Female

DRUGS (1)
  1. PRISTIQ [Suspect]
     Dosage: UNKNOWN
     Route: 048
     Dates: start: 20091201

REACTIONS (1)
  - HEPATIC ENZYME INCREASED [None]
